FAERS Safety Report 8457486-5 (Version None)
Quarter: 2012Q2

REPORT INFORMATION
  Report Type: 
  Country: None (occurrence: None)
  Receive Date: 20120622
  Receipt Date: 20120613
  Transmission Date: 20120825
  Serious: Yes (Hospitalization)
  Sender: FDA-Public Use
  Company Number: SE-AMGEN-SWECT2012033598

PATIENT
  Age: 49 Year
  Sex: Male

DRUGS (4)
  1. ETANERCEPT [Suspect]
     Indication: RHEUMATOID ARTHRITIS
     Dosage: 50 MG, WEEKLY
     Route: 058
     Dates: start: 20040801
  2. METHOTREXATE [Concomitant]
     Dosage: UNK
     Dates: start: 20060117, end: 20110301
  3. PREDNISOLONE [Concomitant]
     Dosage: UNK
     Dates: start: 20100113
  4. SULFASALAZINE [Concomitant]
     Dosage: UNK
     Dates: start: 20070905, end: 20100113

REACTIONS (1)
  - PLEURISY [None]
